FAERS Safety Report 4965892-6 (Version None)
Quarter: 2006Q2

REPORT INFORMATION
  Report Type: 
  Country: None (occurrence: None)
  Receive Date: 20060407
  Receipt Date: 20060322
  Transmission Date: 20061013
  Serious: Yes (Hospitalization, Other)
  Sender: FDA-Public Use
  Company Number: PHHO2006GB04720

PATIENT
  Age: 39 Year
  Sex: Female
  Weight: 58 kg

DRUGS (3)
  1. ZOLEDRONIC ACID [Suspect]
     Indication: METASTASES TO BONE
     Dosage: 4 MG, UNK
     Route: 042
     Dates: start: 20040610, end: 20060110
  2. VITAMIN D [Concomitant]
  3. CALCIUM GLUCONATE [Concomitant]

REACTIONS (7)
  - BACTERIAL INFECTION [None]
  - FUNGAL INFECTION [None]
  - IMPAIRED HEALING [None]
  - INFLAMMATION [None]
  - OSTEOMYELITIS [None]
  - OSTEONECROSIS [None]
  - TOOTH EXTRACTION [None]
